FAERS Safety Report 6992600-X (Version None)
Quarter: 2010Q3

REPORT INFORMATION
  Report Type: 
  Country: None (occurrence: None)
  Receive Date: 20100917
  Receipt Date: 20100907
  Transmission Date: 20110219
  Serious: Yes (Other)
  Sender: FDA-Public Use
  Company Number: DE-ROCHE-726845

PATIENT
  Sex: Female
  Weight: 55 kg

DRUGS (4)
  1. CAPECITABINE [Suspect]
     Dosage: THE 3RD CYCLE WAS STARTED ON 23-AUG-2010
     Route: 048
     Dates: end: 20100906
  2. OXALIPLATIN [Suspect]
     Dosage: THE 3RD CYCLE, ADMINISTRATION ON DAY 1 WAS STARTED ON 23-AUG-2010
     Route: 042
     Dates: end: 20100823
  3. PANTOPRAZOLE SODIUM [Concomitant]
     Dosage: LONG-TERM MEDICATION
     Route: 048
  4. SELEN [Concomitant]
     Dosage: LONG-TERM MEDICATION
     Route: 048

REACTIONS (2)
  - ABDOMINAL PAIN LOWER [None]
  - HYPERLIPASAEMIA [None]
